FAERS Safety Report 11725580 (Version 2)
Quarter: 2015Q4

REPORT INFORMATION
  Report Type: Spontaneous
  Country: US (occurrence: US)
  Receive Date: 20151111
  Receipt Date: 20151124
  Transmission Date: 20160304
  Serious: Yes (Other)
  Sender: FDA-Public Use
  Company Number: US-UCBSA-2015005265

PATIENT
  Age: 52 Year
  Sex: Female
  Weight: 59 kg

DRUGS (7)
  1. VIMPAT [Suspect]
     Active Substance: LACOSAMIDE
     Dosage: 100 MG, 2X/DAY (BID)
     Route: 048
     Dates: start: 20151005, end: 20151015
  2. PHENOBARBITAL. [Concomitant]
     Active Substance: PHENOBARBITAL
     Indication: PRODUCT USED FOR UNKNOWN INDICATION
     Dosage: DISCONTINUED 6 MONTHS AGO
     Dates: end: 2014
  3. KEPPRA [Suspect]
     Active Substance: LEVETIRACETAM
     Dosage: 500 MG, ONCE DAILY (QD), AND WILL BE TITRATED OFF IN THE NEAR FUTURE
     Route: 048
     Dates: start: 20151021
  4. VIMPAT [Suspect]
     Active Substance: LACOSAMIDE
     Indication: EPILEPSY
     Dosage: 200 MG, ONCE DAILY (QD)
     Dates: start: 20150921, end: 2015
  5. VIMPAT [Suspect]
     Active Substance: LACOSAMIDE
     Dosage: 200 MG, 2X/DAY (BID) (NOT DEFINED INCREASE)
     Route: 048
     Dates: start: 20151016
  6. KEPPRA [Suspect]
     Active Substance: LEVETIRACETAM
     Dosage: 500 MG, 2X/DAY (BID)
     Route: 048
     Dates: start: 2014, end: 20151019
  7. KEPPRA [Suspect]
     Active Substance: LEVETIRACETAM
     Indication: EPILEPSY
     Dosage: 500 MG, ONCE DAILY (QD)
     Dates: start: 2013

REACTIONS (22)
  - Irritability [Not Recovered/Not Resolved]
  - Medication error [Unknown]
  - Platelet count increased [Recovering/Resolving]
  - Tremor [Not Recovered/Not Resolved]
  - Chest pain [Recovering/Resolving]
  - Palpitations [Recovering/Resolving]
  - Agitation [Not Recovered/Not Resolved]
  - Seizure [Recovered/Resolved]
  - Back pain [Not Recovered/Not Resolved]
  - Dry mouth [Recovering/Resolving]
  - Inappropriate schedule of drug administration [Unknown]
  - Mood swings [Not Recovered/Not Resolved]
  - Dizziness [Recovered/Resolved]
  - Aphthous ulcer [Recovering/Resolving]
  - Partial seizures [Recovering/Resolving]
  - Insomnia [Not Recovered/Not Resolved]
  - Cold sweat [Not Recovered/Not Resolved]
  - Asthenia [Recovered/Resolved]
  - Swollen tongue [Recovering/Resolving]
  - Arthralgia [Not Recovered/Not Resolved]
  - Heart rate increased [Recovering/Resolving]
  - Nausea [Recovered/Resolved]

NARRATIVE: CASE EVENT DATE: 2014
